FAERS Safety Report 7466397-3 (Version None)
Quarter: 2011Q2

REPORT INFORMATION
  Report Type: 
  Country: None (occurrence: None)
  Receive Date: 20110509
  Receipt Date: 20110428
  Transmission Date: 20111010
  Serious: Yes (Death)
  Sender: FDA-Public Use
  Company Number: NL-ACTELION-A-CH2009-26461

PATIENT
  Sex: Female

DRUGS (7)
  1. TRACLEER [Suspect]
     Indication: SKIN ULCER
     Dosage: 62.5 MG, BID
     Route: 048
     Dates: start: 20090113
  2. TRACLEER [Suspect]
     Dosage: 125 MG, BID
     Route: 048
     Dates: end: 20090704
  3. RISEDRONIC ACID [Concomitant]
  4. IRBESARTAN [Concomitant]
  5. PREDNISONE [Concomitant]
  6. DICLOFENAC [Concomitant]
  7. OMEPRAZOLE [Concomitant]

REACTIONS (3)
  - DEATH [None]
  - HAEMOGLOBIN DECREASED [None]
  - PRURITUS [None]
